FAERS Safety Report 24377935 (Version 1)
Quarter: 2024Q3

REPORT INFORMATION
  Report Type: Report from Study
  Country: US (occurrence: US)
  Receive Date: 20240930
  Receipt Date: 20240930
  Transmission Date: 20241016
  Serious: Yes (Other)
  Sender: ABBVIE
  Company Number: US-ABBVIE-5940705

PATIENT
  Age: 71 Year
  Sex: Female

DRUGS (1)
  1. HUMIRA [Suspect]
     Active Substance: ADALIMUMAB
     Indication: Uveitis
     Dosage: CITRATE FREE
     Route: 058
     Dates: start: 20240718, end: 20240910

REACTIONS (6)
  - Seizure [Unknown]
  - Joint swelling [Unknown]
  - Head discomfort [Unknown]
  - Nervousness [Unknown]
  - Feeling jittery [Unknown]
  - Fatigue [Unknown]

NARRATIVE: CASE EVENT DATE: 20240719
